FAERS Safety Report 17904195 (Version 1)
Quarter: 2020Q2

REPORT INFORMATION
  Report Type: Spontaneous
  Country: US (occurrence: US)
  Receive Date: 20200617
  Receipt Date: 20200617
  Transmission Date: 20200714
  Serious: No
  Sender: FDA-Public Use
  Company Number: US-AUROBINDO-AUR-APL-2019-032782

PATIENT
  Age: 11 Year
  Sex: Male
  Weight: 33.56 kg

DRUGS (1)
  1. CLINDAMYCIN PALMITATE HYDROCHLORIDE FOR ORAL SOLUTION USP(PEDIATRIC) [Suspect]
     Active Substance: CLINDAMYCIN PALMITATE HYDROCHLORIDE
     Indication: EAR INFECTION
     Dosage: UNK, 3 TIMES A DAY
     Route: 065
     Dates: start: 20190529, end: 20190529

REACTIONS (1)
  - Product quality issue [Unknown]
